FAERS Safety Report 11500608 (Version 1)
Quarter: 2015Q3

REPORT INFORMATION
  Report Type: Spontaneous
  Country: US (occurrence: US)
  Receive Date: 20150914
  Receipt Date: 20150914
  Transmission Date: 20151125
  Serious: No
  Sender: FDA-Public Use
  Company Number: US-BAYER-2015-414264

PATIENT
  Age: 19 Year
  Sex: Female

DRUGS (2)
  1. NATAZIA [Suspect]
     Active Substance: DIENOGEST\ESTRADIOL VALERATE
     Indication: CONTRACEPTION
     Dosage: UNK
     Route: 048
     Dates: start: 2014
  2. NATAZIA [Suspect]
     Active Substance: DIENOGEST\ESTRADIOL VALERATE
     Indication: MENORRHAGIA

REACTIONS (2)
  - Drug dose omission [None]
  - Extra dose administered [None]
